FAERS Safety Report 18410048 (Version 1)
Quarter: 2020Q4

REPORT INFORMATION
  Report Type: Spontaneous
  Country: US (occurrence: US)
  Receive Date: 20201021
  Receipt Date: 20201021
  Transmission Date: 20210114
  Serious: No
  Sender: FDA-Public Use
  Company Number: None

PATIENT
  Age: 21 Year
  Sex: Female
  Weight: 67.5 kg

DRUGS (4)
  1. PARAGARD T 380A [Concomitant]
     Active Substance: COPPER
  2. IBUPROFEN. [Concomitant]
     Active Substance: IBUPROFEN
  3. BUSPIRONE HCL 5 MG TABLET [Suspect]
     Active Substance: BUSPIRONE HYDROCHLORIDE
     Indication: DEPRESSION
     Dosage: ?          QUANTITY:1 TABLET(S);?
     Route: 048
     Dates: start: 20200421, end: 20200423
  4. BUSPIRONE HCL 5 MG TABLET [Suspect]
     Active Substance: BUSPIRONE HYDROCHLORIDE
     Indication: ANXIETY
     Dosage: ?          QUANTITY:1 TABLET(S);?
     Route: 048
     Dates: start: 20200421, end: 20200423

REACTIONS (3)
  - Dyskinesia [None]
  - Tremor [None]
  - Musculoskeletal stiffness [None]

NARRATIVE: CASE EVENT DATE: 20200501
